FAERS Safety Report 6752996-0 (Version None)
Quarter: 2010Q2

REPORT INFORMATION
  Report Type: 
  Country: None (occurrence: None)
  Receive Date: 20100528
  Receipt Date: 20100521
  Transmission Date: 20101027
  Serious: Yes (Other)
  Sender: FDA-Public Use
  Company Number: FR-1181550

PATIENT
  Age: 64 Year
  Sex: Female

DRUGS (1)
  1. AZOPT [Suspect]
     Indication: OCULAR HYPERTENSION
     Dosage: 1 GTT BID, OPHTHALMIC
     Route: 047
     Dates: start: 20100408, end: 20100513

REACTIONS (2)
  - HEPATIC PAIN [None]
  - JAUNDICE [None]
